FAERS Safety Report 20365168 (Version 4)
Quarter: 2022Q1

REPORT INFORMATION
  Report Type: Spontaneous
  Country: IR (occurrence: IR)
  Receive Date: 20220122
  Receipt Date: 20220323
  Transmission Date: 20220423
  Serious: Yes (Hospitalization, Other)
  Sender: FDA-Public Use
  Company Number: IR-Accord-251470

PATIENT
  Age: 42 Year
  Sex: Male

DRUGS (4)
  1. OXALIPLATIN [Suspect]
     Active Substance: OXALIPLATIN
     Indication: Peripheral T-cell lymphoma unspecified refractory
     Dosage: IN 500 ML DEXTROSE 5% OVER 2 H
     Route: 042
     Dates: start: 2020
  2. GEMCITABINE [Concomitant]
     Active Substance: GEMCITABINE
     Indication: Peripheral T-cell lymphoma unspecified refractory
     Dosage: IN 500 ML NORMAL SALINE WITH THE RATE OF 10 MG/ M2/MIN
     Route: 042
     Dates: start: 2020
  3. SALINE [Concomitant]
     Active Substance: SODIUM CHLORIDE
     Indication: T-cell lymphoma
     Route: 042
     Dates: start: 2020
  4. DEXTROSE [Concomitant]
     Active Substance: DEXTROSE
     Indication: T-cell lymphoma
     Route: 042
     Dates: start: 2020

REACTIONS (4)
  - Asthenia [Recovering/Resolving]
  - Paraplegia [Recovering/Resolving]
  - Peripheral sensory neuropathy [Recovering/Resolving]
  - Axonal and demyelinating polyneuropathy [Recovering/Resolving]

NARRATIVE: CASE EVENT DATE: 20210101
